FAERS Safety Report 4615183-8 (Version None)
Quarter: 2005Q1

REPORT INFORMATION
  Report Type: 
  Country: None (occurrence: None)
  Receive Date: 20050322
  Receipt Date: 20050316
  Transmission Date: 20050727
  Serious: Yes (Hospitalization)
  Sender: FDA-Public Use
  Company Number: 2005004750

PATIENT
  Age: 58 Year
  Sex: Female
  Weight: 65 kg

DRUGS (8)
  1. LAMICTAL [Suspect]
     Route: 048
  2. THYROXIN [Suspect]
     Route: 048
  3. ROHYPNOL [Suspect]
     Route: 048
  4. ATACAND [Suspect]
     Route: 048
  5. MOCLOBEMID [Suspect]
     Route: 048
  6. MAPROTILINE [Suspect]
     Route: 048
  7. LEVOMEPROMAZIN [Suspect]
     Route: 048
  8. ARELIX [Suspect]
     Route: 048

REACTIONS (7)
  - BUNDLE BRANCH BLOCK [None]
  - CONVULSION [None]
  - DIARRHOEA [None]
  - INTENTIONAL MISUSE [None]
  - MUSCLE TWITCHING [None]
  - SUICIDE ATTEMPT [None]
  - VOMITING [None]
